FAERS Safety Report 14137899 (Version 2)
Quarter: 2017Q4

REPORT INFORMATION
  Report Type: Report from Study
  Country: None (occurrence: US)
  Receive Date: 20171027
  Receipt Date: 20171108
  Transmission Date: 20180321
  Serious: Yes (Hospitalization, Other)
  Sender: FDA-Public Use
  Company Number: US-ABBVIE-17K-163-2139215-00

PATIENT
  Sex: Male

DRUGS (2)
  1. ANDROGEL [Suspect]
     Active Substance: TESTOSTERONE
     Indication: PRODUCT USED FOR UNKNOWN INDICATION
     Dosage: 2 PUMPS TO UPPER ARM DAILY
     Route: 061
     Dates: start: 2012, end: 2014
  2. ANDROGEL [Suspect]
     Active Substance: TESTOSTERONE
     Route: 061
     Dates: start: 201710

REACTIONS (7)
  - Renal impairment [Unknown]
  - Loss of consciousness [Unknown]
  - Hypophagia [Unknown]
  - Dehydration [Recovered/Resolved]
  - Weight decreased [Unknown]
  - Eye operation [Unknown]
  - Libido decreased [Unknown]

NARRATIVE: CASE EVENT DATE: 2017
